FAERS Safety Report 21773186 (Version 1)
Quarter: 2022Q4

REPORT INFORMATION
  Report Type: Spontaneous
  Country: GR (occurrence: GR)
  Receive Date: 20221223
  Receipt Date: 20221223
  Transmission Date: 20230113
  Serious: Yes (Other)
  Sender: FDA-Public Use
  Company Number: GR-PFIZER INC-PV202200124937

PATIENT
  Age: 36 Year
  Sex: Female

DRUGS (1)
  1. METHYLPREDNISOLONE [Suspect]
     Active Substance: METHYLPREDNISOLONE
     Indication: Microangiopathic haemolytic anaemia
     Dosage: HIGH DOSE

REACTIONS (3)
  - Maternal exposure during pregnancy [Unknown]
  - Disease recurrence [Recovered/Resolved]
  - Mitochondrial encephalomyopathy [Unknown]
